FAERS Safety Report 18785197 (Version 1)
Quarter: 2021Q1

REPORT INFORMATION
  Report Type: Spontaneous
  Country: US (occurrence: US)
  Receive Date: 20210125
  Receipt Date: 20210125
  Transmission Date: 20210419
  Serious: Yes (Death)
  Sender: FDA-Public Use
  Company Number: US-SYNEX-T202100237

PATIENT
  Age: 5 Month
  Sex: Female

DRUGS (2)
  1. INOMAX [Suspect]
     Active Substance: NITRIC OXIDE
     Indication: NEWBORN PERSISTENT PULMONARY HYPERTENSION
  2. INOMAX [Suspect]
     Active Substance: NITRIC OXIDE
     Indication: CONGENITAL DIAPHRAGMATIC HERNIA
     Dosage: 20 PPM (INHALATION)
     Route: 055
     Dates: start: 20200430, end: 20201002

REACTIONS (2)
  - Cardiopulmonary failure [Fatal]
  - Cardio-respiratory arrest [Fatal]

NARRATIVE: CASE EVENT DATE: 20201002
